FAERS Safety Report 5481086-2 (Version None)
Quarter: 2007Q4

REPORT INFORMATION
  Report Type: 
  Country: None (occurrence: None)
  Receive Date: 20071003
  Receipt Date: 20070921
  Transmission Date: 20080405
  Serious: Yes (Other)
  Sender: FDA-Public Use
  Company Number: 161841ISR

PATIENT
  Sex: Female

DRUGS (2)
  1. MIRTAZAPINE [Suspect]
     Dosage: 30 MG (30 MG, 1 IN 1 D) ORAL
     Route: 048
  2. FLUPENTIXOL [Suspect]

REACTIONS (2)
  - FACIAL PALSY [None]
  - MONONEUROPATHY MULTIPLEX [None]
